FAERS Safety Report 8801684 (Version 2)
Quarter: 2016Q3

REPORT INFORMATION
  Report Type: Spontaneous
  Country: US (occurrence: US)
  Receive Date: 20120921
  Receipt Date: 20160719
  Transmission Date: 20161109
  Serious: Yes (Death, Hospitalization, Other)
  Sender: FDA-Public Use
  Company Number: US-ELI_LILLY_AND_COMPANY-US200910007677

PATIENT
  Age: 52 Year
  Sex: Female

DRUGS (9)
  1. ZYPREXA [Suspect]
     Active Substance: OLANZAPINE
     Indication: SCHIZOPHRENIA
     Dosage: 5 MG, EACH EVENING
     Dates: start: 20010430
  2. PAXIL [Concomitant]
     Active Substance: PAROXETINE HYDROCHLORIDE
     Dosage: UNK
  3. GLUCOVANCE [Concomitant]
     Active Substance: GLYBURIDE\METFORMIN HYDROCHLORIDE
  4. COGENTIN [Concomitant]
     Active Substance: BENZTROPINE MESYLATE
  5. VISTARIL [Concomitant]
     Active Substance: HYDROXYZINE PAMOATE
  6. TRILAFON [Concomitant]
     Active Substance: PERPHENAZINE
  7. LOTREL                             /01388302/ [Concomitant]
  8. LASIX [Concomitant]
     Active Substance: FUROSEMIDE
  9. NORVASC [Concomitant]
     Active Substance: AMLODIPINE BESYLATE

REACTIONS (24)
  - Intestinal obstruction [Unknown]
  - Conjunctivitis [Unknown]
  - Acute sinusitis [Unknown]
  - Hyperlipidaemia [Unknown]
  - Hypotension [Recovered/Resolved]
  - Weight decreased [Unknown]
  - Cyst [Unknown]
  - Urinary tract infection [Unknown]
  - Hyperglycaemia [Recovering/Resolving]
  - Haematocrit increased [Unknown]
  - Dental caries [Unknown]
  - Diabetes mellitus [Unknown]
  - Cardiac failure congestive [Unknown]
  - Acidosis [Recovering/Resolving]
  - Hyponatraemia [Recovered/Resolved]
  - Cardiomyopathy [Unknown]
  - Nasopharyngitis [Unknown]
  - Haemoglobin increased [Unknown]
  - Sinusitis [Unknown]
  - Cerebrovascular accident [Fatal]
  - Leukocytosis [Unknown]
  - Chest pain [Unknown]
  - Bronchitis [Unknown]
  - Neutrophil count increased [Recovered/Resolved]

NARRATIVE: CASE EVENT DATE: 20040416
